FAERS Safety Report 9741463 (Version 2)
Quarter: 2014Q2

REPORT INFORMATION
  Report Type: Spontaneous
  Country: CA (occurrence: CA)
  Receive Date: 20131209
  Receipt Date: 20140424
  Transmission Date: 20141212
  Serious: Yes (Other)
  Sender: FDA-Public Use
  Company Number: PHHY2013CA143732

PATIENT
  Sex: Male

DRUGS (2)
  1. LESCOL [Suspect]
     Dosage: UNK UKN, UNK
     Dates: start: 1998
  2. FLUVASTATIN TEVA [Suspect]
     Dosage: UNK UKN, UNK

REACTIONS (1)
  - Cerebrovascular accident [Unknown]
